FAERS Safety Report 5697562-3 (Version None)
Quarter: 2008Q2

REPORT INFORMATION
  Report Type: 
  Country: None (occurrence: None)
  Receive Date: 20080408
  Receipt Date: 20080331
  Transmission Date: 20081010
  Serious: Yes (Other)
  Sender: FDA-Public Use
  Company Number: GB-ASTRAZENECA-2008GB00629

PATIENT
  Age: 69 Year
  Sex: Male
  Weight: 91 kg

DRUGS (8)
  1. SYMBICORT [Suspect]
     Indication: CHRONIC OBSTRUCTIVE PULMONARY DISEASE
     Route: 055
     Dates: start: 20080109, end: 20080307
  2. EZETIMIBE [Concomitant]
     Indication: HYPERCHOLESTEROLAEMIA
     Dosage: 10 MG
     Route: 048
     Dates: start: 20040913
  3. FUROSEMIDE [Concomitant]
     Indication: LEFT VENTRICULAR FAILURE
     Dosage: 120 MG
     Route: 048
     Dates: start: 20070619
  4. IPRATROPIUM BROMIDE [Concomitant]
     Indication: CHRONIC OBSTRUCTIVE PULMONARY DISEASE
     Route: 055
     Dates: start: 20050727
  5. LOSARTAN POTASSIUM [Concomitant]
     Indication: LEFT VENTRICULAR FAILURE
     Dosage: 50 MG
     Route: 048
     Dates: start: 20071210
  6. SALBUTAMOL [Concomitant]
     Indication: CHRONIC OBSTRUCTIVE PULMONARY DISEASE
     Route: 055
     Dates: start: 20010101
  7. SPIRONOLACTONE [Concomitant]
     Indication: LEFT VENTRICULAR FAILURE
     Dosage: 25 MG
     Route: 048
     Dates: start: 20030404
  8. BECLOMETHASONE DIPROPIONATE [Concomitant]
     Dates: start: 20010101, end: 20080101

REACTIONS (6)
  - CHEYNE-STOKES RESPIRATION [None]
  - CONDITION AGGRAVATED [None]
  - INSOMNIA [None]
  - LEFT VENTRICULAR FAILURE [None]
  - NOCTURNAL DYSPNOEA [None]
  - ORTHOPNOEA [None]
